FAERS Safety Report 23359200 (Version 4)
Quarter: 2024Q1

REPORT INFORMATION
  Report Type: Spontaneous
  Country: US (occurrence: US)
  Receive Date: 20240102
  Receipt Date: 20240202
  Transmission Date: 20240410
  Serious: Yes (Hospitalization)
  Sender: FDA-Public Use
  Company Number: US-AMGEN-USASP2023233470

PATIENT
  Age: 35 Year
  Sex: Male
  Weight: 118.64 kg

DRUGS (3)
  1. NEULASTA [Suspect]
     Active Substance: PEGFILGRASTIM
     Indication: Neutropenia
     Dosage: 6000 MICROGRAM
     Route: 058
  2. NEULASTA [Suspect]
     Active Substance: PEGFILGRASTIM
     Indication: Agranulocytosis
     Dosage: 6000 MICROGRAM
     Route: 058
  3. NEULASTA [Suspect]
     Active Substance: PEGFILGRASTIM
     Indication: Hodgkin^s disease

REACTIONS (2)
  - COVID-19 [Unknown]
  - Device occlusion [Unknown]

NARRATIVE: CASE EVENT DATE: 20231201
